FAERS Safety Report 9012285 (Version 1)
Quarter: 2013Q1

REPORT INFORMATION
  Report Type: Spontaneous
  Country: US (occurrence: US)
  Receive Date: 20130114
  Receipt Date: 20130114
  Transmission Date: 20140127
  Serious: Yes (Other)
  Sender: FDA-Public Use
  Company Number: PHEH2013US000912

PATIENT
  Sex: 0

DRUGS (1)
  1. SANDOSTATIN [Suspect]

REACTIONS (1)
  - Blindness [Unknown]
